FAERS Safety Report 20726473 (Version 2)
Quarter: 2022Q2

REPORT INFORMATION
  Report Type: Spontaneous
  Country: JP (occurrence: JP)
  Receive Date: 20220419
  Receipt Date: 20220613
  Transmission Date: 20220721
  Serious: Yes (Hospitalization)
  Sender: FDA-Public Use
  Company Number: JP-MALLINCKRODT-T202201862

PATIENT
  Age: 87 Year
  Sex: Female
  Weight: 44.8 kg

DRUGS (8)
  1. AMITIZA [Suspect]
     Active Substance: LUBIPROSTONE
     Indication: Constipation
     Dosage: 12 MICROGRAM, QD
     Route: 048
     Dates: start: 20211126, end: 20211201
  2. DAYVIGO [Suspect]
     Active Substance: LEMBOREXANT
     Indication: Insomnia
     Dosage: 7.5 MILLIGRAM, QD
     Route: 048
     Dates: start: 20211109, end: 20211202
  3. DAYVIGO [Suspect]
     Active Substance: LEMBOREXANT
     Dosage: UNK
     Route: 048
  4. AZOSEMIDE [Suspect]
     Active Substance: AZOSEMIDE
     Indication: Cardiac failure
     Dosage: 30 MILLIGRAM, QD
     Route: 048
     Dates: start: 20211118
  5. AZOSEMIDE [Suspect]
     Active Substance: AZOSEMIDE
     Dosage: UNK
     Route: 048
  6. AMLODIPINE [Concomitant]
     Active Substance: AMLODIPINE BESYLATE
     Indication: Product used for unknown indication
     Dosage: 10 MILLIGRAM, BID
     Route: 065
  7. LEVOTHYROXINE SODIUM [Concomitant]
     Active Substance: LEVOTHYROXINE SODIUM
     Indication: Product used for unknown indication
     Dosage: 50 MICROGRAM, QD
     Route: 065
  8. CALCIUM POLYSTYRENE SULFONATE [Concomitant]
     Active Substance: CALCIUM POLYSTYRENE SULFONATE
     Indication: Product used for unknown indication
     Dosage: 25 GRAM, QD
     Route: 065

REACTIONS (2)
  - Drug-induced liver injury [Recovering/Resolving]
  - Chest discomfort [Unknown]

NARRATIVE: CASE EVENT DATE: 20211202
